FAERS Safety Report 10721554 (Version 1)
Quarter: 2015Q1

REPORT INFORMATION
  Report Type: Spontaneous
  Country: US (occurrence: US)
  Receive Date: 20150119
  Receipt Date: 20150119
  Transmission Date: 20150721
  Serious: Yes (Death, Hospitalization, Other)
  Sender: FDA-Public Use
  Company Number: US-BAYER-2015-005603

PATIENT
  Age: 36 Year
  Sex: Male

DRUGS (1)
  1. ACETYLSALICYLIC ACID (} 100 MG) [Suspect]
     Active Substance: ASPIRIN
     Dosage: 500 TABLETS OF 325 MG
     Route: 048

REACTIONS (13)
  - Toxicity to various agents [Fatal]
  - Respiratory alkalosis [None]
  - Vomiting [Fatal]
  - Confusional state [Fatal]
  - Agitation [Fatal]
  - Cardiac arrest [Fatal]
  - Diarrhoea [None]
  - Aggression [Fatal]
  - Haematemesis [None]
  - Intentional overdose [Fatal]
  - Electrocardiogram QRS complex prolonged [Fatal]
  - Metabolic acidosis [None]
  - Nausea [Fatal]
